FAERS Safety Report 13045757 (Version 2)
Quarter: 2016Q4

REPORT INFORMATION
  Report Type: Spontaneous
  Country: TW (occurrence: TW)
  Receive Date: 20161220
  Receipt Date: 20161221
  Transmission Date: 20170207
  Serious: Yes (Hospitalization, Other)
  Sender: FDA-Public Use
  Company Number: TW-ACTELION-A-CH2016-146738

PATIENT
  Age: 22 Year
  Sex: Male
  Weight: 76 kg

DRUGS (3)
  1. ALLOPURINOL. [Concomitant]
     Active Substance: ALLOPURINOL
  2. TRACLEER [Suspect]
     Active Substance: BOSENTAN
     Indication: PULMONARY ARTERIAL HYPERTENSION
     Dosage: UNK
     Route: 048
     Dates: start: 20111012, end: 20161101
  3. REVATIO [Concomitant]
     Active Substance: SILDENAFIL CITRATE
     Indication: PULMONARY ARTERIAL HYPERTENSION
     Dosage: 20 MG, TID
     Route: 048

REACTIONS (12)
  - Jaundice [Not Recovered/Not Resolved]
  - Anal abscess [Recovered/Resolved]
  - Pyrexia [Unknown]
  - Dyspnoea [Recovering/Resolving]
  - Hepatic congestion [Unknown]
  - Systemic inflammatory response syndrome [Recovered/Resolved]
  - Cellulitis [Unknown]
  - Oedema peripheral [Recovering/Resolving]
  - Anal fistula excision [Unknown]
  - Hepatic enzyme increased [Unknown]
  - Chills [Unknown]
  - Sepsis [Unknown]

NARRATIVE: CASE EVENT DATE: 201610
